FAERS Safety Report 6999692-2 (Version None)
Quarter: 2010Q3

REPORT INFORMATION
  Report Type: 
  Country: None (occurrence: None)
  Receive Date: 20100920
  Receipt Date: 20091119
  Transmission Date: 20110219
  Serious: Yes (Other)
  Sender: FDA-Public Use
  Company Number: US-ASTRAZENECA-2009UW03710

PATIENT
  Age: 36 Year
  Sex: Female
  Weight: 83 kg

DRUGS (5)
  1. SEROQUEL [Suspect]
     Indication: DEPRESSION
     Route: 048
     Dates: start: 20050225, end: 20081001
  2. TRAZODONE HCL [Concomitant]
  3. TOPAMAX [Concomitant]
  4. TEGRETOL [Concomitant]
  5. KOLOPIN [Concomitant]
     Dates: start: 20060101

REACTIONS (3)
  - SUICIDE ATTEMPT [None]
  - TYPE 2 DIABETES MELLITUS [None]
  - WEIGHT INCREASED [None]
